FAERS Safety Report 14963657 (Version 1)
Quarter: 2018Q2

REPORT INFORMATION
  Report Type: Spontaneous
  Country: US (occurrence: US)
  Receive Date: 20180601
  Receipt Date: 20180601
  Transmission Date: 20180711
  Serious: Yes (Hospitalization)
  Sender: FDA-Public Use
  Company Number: US-JNJFOC-20180538929

PATIENT
  Age: 61 Year
  Sex: Female

DRUGS (2)
  1. INVOKANA [Suspect]
     Active Substance: CANAGLIFLOZIN
     Indication: TYPE 2 DIABETES MELLITUS
     Route: 048
     Dates: start: 20161007
  2. INVOKANA [Suspect]
     Active Substance: CANAGLIFLOZIN
     Indication: TYPE 2 DIABETES MELLITUS
     Route: 048
     Dates: start: 201702, end: 20170615

REACTIONS (9)
  - Foot amputation [Unknown]
  - Gangrene [Recovering/Resolving]
  - Skin ulcer [Recovering/Resolving]
  - Burns second degree [Recovering/Resolving]
  - Diabetic foot infection [Recovering/Resolving]
  - Osteomyelitis [Recovering/Resolving]
  - Sepsis [Recovering/Resolving]
  - Acute kidney injury [Recovering/Resolving]
  - Toe amputation [Unknown]

NARRATIVE: CASE EVENT DATE: 201611
